FAERS Safety Report 6398935-6 (Version None)
Quarter: 2009Q4

REPORT INFORMATION
  Report Type: 
  Country: None (occurrence: None)
  Receive Date: 20091013
  Receipt Date: 20090930
  Transmission Date: 20100525
  Serious: Yes (Hospitalization)
  Sender: FDA-Public Use
  Company Number: US-ELI_LILLY_AND_COMPANY-US200910000144

PATIENT
  Sex: Female

DRUGS (11)
  1. FORTEO [Suspect]
     Indication: OSTEOPOROSIS
     Dosage: UNK, UNK
     Dates: start: 20090101, end: 20090929
  2. NEXIUM [Concomitant]
  3. METOPROLOL [Concomitant]
  4. TRICOR [Concomitant]
  5. LIPITOR [Concomitant]
  6. SYNTHROID [Concomitant]
  7. ZETIA [Concomitant]
  8. GLIPIZIDE [Concomitant]
  9. NIFEDIPINE [Concomitant]
  10. ENALAPRIL MALEATE [Concomitant]
  11. DICLOFENAC [Concomitant]

REACTIONS (4)
  - DYSPNOEA [None]
  - FEELING ABNORMAL [None]
  - HEART RATE INCREASED [None]
  - PALPITATIONS [None]
